FAERS Safety Report 8508086-X (Version None)
Quarter: 2012Q3

REPORT INFORMATION
  Report Type: 
  Country: None (occurrence: None)
  Receive Date: 20120713
  Receipt Date: 20120703
  Transmission Date: 20120928
  Serious: Yes (Other)
  Sender: FDA-Public Use
  Company Number: JP-UCBSA-060861

PATIENT
  Age: 84 Year

DRUGS (2)
  1. KEPPRA [Suspect]
     Route: 048
  2. PHENOBARBITAL TAB [Concomitant]
     Dosage: UNKNOWN DOSE

REACTIONS (1)
  - PANCYTOPENIA [None]
